FAERS Safety Report 7659062-0 (Version None)
Quarter: 2011Q3

REPORT INFORMATION
  Report Type: 
  Country: None (occurrence: None)
  Receive Date: 20110805
  Receipt Date: 20110802
  Transmission Date: 20111222
  Serious: Yes (Hospitalization, Disabling, Other)
  Sender: FDA-Public Use
  Company Number: US-PFIZER INC-2009221737

PATIENT
  Sex: Female
  Weight: 88 kg

DRUGS (12)
  1. CHANTIX [Suspect]
  2. XANAX [Concomitant]
  3. WELLBUTRIN [Concomitant]
  4. REGLAN [Concomitant]
  5. LASIX [Concomitant]
  6. CHANTIX [Suspect]
     Dosage: UNK
     Dates: start: 20110101
  7. NEXIUM [Concomitant]
  8. TRAZODONE [Concomitant]
  9. LOTENSIN [Concomitant]
  10. CHANTIX [Suspect]
     Indication: SMOKING CESSATION THERAPY
     Dates: start: 20090525
  11. ZOLOFT [Concomitant]
  12. PERCOCET [Concomitant]
     Indication: PAIN

REACTIONS (5)
  - HYPERTENSION [None]
  - PNEUMONIA [None]
  - ARTHROPATHY [None]
  - POST PROCEDURAL COMPLICATION [None]
  - INFLUENZA [None]
